FAERS Safety Report 19279660 (Version 1)
Quarter: 2021Q2

REPORT INFORMATION
  Report Type: Spontaneous
  Country: BR (occurrence: BR)
  Receive Date: 20210520
  Receipt Date: 20210520
  Transmission Date: 20210717
  Serious: Yes (Hospitalization)
  Sender: FDA-Public Use
  Company Number: BR-ELI_LILLY_AND_COMPANY-BR202105006368

PATIENT
  Age: 77 Year
  Sex: Male
  Weight: 72 kg

DRUGS (3)
  1. TEVACARBO [Concomitant]
     Active Substance: CARBOPLATIN
     Indication: BLADDER CANCER RECURRENT
     Dosage: UNK, UNKNOWN
     Route: 065
  2. GEMZAR [Suspect]
     Active Substance: GEMCITABINE HYDROCHLORIDE
     Indication: BLADDER CANCER RECURRENT
     Dosage: 1510 MG, UNKNOWN
     Route: 065
     Dates: start: 20210325
  3. GEMZAR [Suspect]
     Active Substance: GEMCITABINE HYDROCHLORIDE
     Indication: BLADDER CANCER RECURRENT
     Dosage: 1510 MG, UNKNOWN
     Route: 065
     Dates: start: 20210325

REACTIONS (5)
  - Haemoglobin decreased [Unknown]
  - Rash macular [Unknown]
  - Neutrophil count decreased [Unknown]
  - Platelet count decreased [Unknown]
  - Off label use [Unknown]

NARRATIVE: CASE EVENT DATE: 20210409
